FAERS Safety Report 24468356 (Version 1)
Quarter: 2024Q4

REPORT INFORMATION
  Report Type: Spontaneous
  Country: FR (occurrence: FR)
  Receive Date: 20241018
  Receipt Date: 20241018
  Transmission Date: 20250114
  Serious: Yes (Hospitalization)
  Sender: RANBAXY
  Company Number: FR-AFSSAPS-NC2024000991

PATIENT
  Age: 53 Year
  Sex: Female
  Weight: 70 kg

DRUGS (3)
  1. OLANZAPINE [Suspect]
     Active Substance: OLANZAPINE
     Indication: Bipolar II disorder
     Dosage: 10 MILLIGRAM, DAILY
     Route: 048
     Dates: end: 20240808
  2. QUETIAPINE [Suspect]
     Active Substance: QUETIAPINE
     Indication: Bipolar II disorder
     Dosage: 300 MILLIGRAM, DAILY
     Route: 048
     Dates: end: 20240808
  3. CYAMEMAZINE [Suspect]
     Active Substance: CYAMEMAZINE
     Indication: Bipolar II disorder
     Dosage: SEE COMMENTARY
     Route: 048
     Dates: end: 20240808

REACTIONS (4)
  - Hypotension [Recovering/Resolving]
  - Coma [Recovered/Resolved]
  - Seizure [Recovering/Resolving]
  - Catatonia [Not Recovered/Not Resolved]

NARRATIVE: CASE EVENT DATE: 20240729
